FAERS Safety Report 7249422-4 (Version None)
Quarter: 2011Q1

REPORT INFORMATION
  Report Type: 
  Country: None (occurrence: None)
  Receive Date: 20110128
  Receipt Date: 20101116
  Transmission Date: 20110831
  Serious: Yes (Life-Threatening, Hospitalization, Other)
  Sender: FDA-Public Use
  Company Number: US-BAYER-201037909NA

PATIENT
  Sex: Female
  Weight: 127 kg

DRUGS (20)
  1. YASMIN [Suspect]
     Indication: PREMENSTRUAL SYNDROME
  2. PERCOCET [Concomitant]
     Dosage: UNK
     Dates: start: 20011101
  3. AUGMENTIN '125' [Concomitant]
  4. OCELLA [Suspect]
     Indication: ACNE
  5. CEPHALEXIN [Concomitant]
     Dosage: UNK
     Dates: start: 20010301
  6. PREDNISONE [Concomitant]
     Dosage: UNK
     Dates: start: 20011001
  7. BIAXIN [Concomitant]
     Dosage: UNK
     Dates: start: 20010401
  8. INSULIN [Concomitant]
  9. ULTRACET [Concomitant]
     Dosage: UNK
     Dates: start: 20011001
  10. AMOXICILLIN [Concomitant]
     Dosage: UNK
     Dates: start: 20010101
  11. VI-Q-TUSS [Concomitant]
     Dosage: UNK
     Dates: start: 20010101
  12. MAXAIR [Concomitant]
  13. YASMIN [Suspect]
     Indication: ACNE
     Dosage: UNK
     Dates: start: 20000101, end: 20030101
  14. PRENATAL VITAMINS [Concomitant]
  15. YAZ [Suspect]
     Indication: PREMENSTRUAL SYNDROME
  16. PERCOCET [Concomitant]
     Dosage: UNK
     Dates: start: 20010201
  17. METHYLPREDNISOLONE ACETATE [Concomitant]
     Dosage: UNK
     Dates: start: 20010401
  18. FLOVENT [Concomitant]
  19. YAZ [Suspect]
     Indication: ACNE
     Dosage: UNK
     Dates: start: 20000101, end: 20030101
  20. PREDNISONE [Concomitant]
     Dosage: UNK
     Dates: start: 20011101

REACTIONS (25)
  - DIARRHOEA [None]
  - JUGULAR VEIN THROMBOSIS [None]
  - FEELING GUILTY [None]
  - NAUSEA [None]
  - SWELLING [None]
  - OEDEMA [None]
  - ASTHENIA [None]
  - PREGNANCY ON ORAL CONTRACEPTIVE [None]
  - DECREASED INTEREST [None]
  - DYSPNOEA [None]
  - ANTEPARTUM HAEMORRHAGE [None]
  - SUBCLAVIAN VEIN THROMBOSIS [None]
  - PRODUCTIVE COUGH [None]
  - DEEP VEIN THROMBOSIS [None]
  - VOMITING [None]
  - SUICIDE ATTEMPT [None]
  - DECREASED APPETITE [None]
  - WEIGHT DECREASED [None]
  - POOR QUALITY SLEEP [None]
  - ABDOMINAL PAIN [None]
  - CHEST DISCOMFORT [None]
  - PAIN IN EXTREMITY [None]
  - DEPRESSED MOOD [None]
  - DISTURBANCE IN ATTENTION [None]
  - DEPRESSIVE SYMPTOM [None]
